FAERS Safety Report 17268440 (Version 3)
Quarter: 2020Q2

REPORT INFORMATION
  Report Type: Report from Study
  Country: GB (occurrence: GB)
  Receive Date: 20200114
  Receipt Date: 20200623
  Transmission Date: 20200713
  Serious: Yes (Other)
  Sender: FDA-Public Use
  Company Number: GB-JNJFOC-20200116854

PATIENT
  Sex: Male

DRUGS (8)
  1. STELARA [Suspect]
     Active Substance: USTEKINUMAB
     Indication: PSORIASIS
     Route: 058
     Dates: start: 2019
  2. FLUTICASONE. [Concomitant]
     Active Substance: FLUTICASONE
  3. RANITIDINE. [Concomitant]
     Active Substance: RANITIDINE
  4. FINASTERIDE. [Concomitant]
     Active Substance: FINASTERIDE
  5. TAMSULOSIN [Concomitant]
     Active Substance: TAMSULOSIN
  6. STELARA [Suspect]
     Active Substance: USTEKINUMAB
  7. FOLIC ACID. [Concomitant]
     Active Substance: FOLIC ACID
  8. OMEPRAZOLE. [Concomitant]
     Active Substance: OMEPRAZOLE

REACTIONS (3)
  - Adverse event [Recovered/Resolved]
  - Lower respiratory tract infection [Unknown]
  - Product dose omission [Unknown]
